FAERS Safety Report 9201620 (Version 1)
Quarter: 2013Q2

REPORT INFORMATION
  Report Type: Spontaneous
  Country: GB (occurrence: GB)
  Receive Date: 20130401
  Receipt Date: 20130401
  Transmission Date: 20140414
  Serious: Yes (Hospitalization)
  Sender: FDA-Public Use
  Company Number: GB-009507513-1303GBR014260

PATIENT
  Age: 37 Year
  Sex: Female
  Weight: 112 kg

DRUGS (1)
  1. NEXPLANON [Suspect]
     Indication: CONTRACEPTION
     Dosage: UNK
     Route: 058
     Dates: start: 20130221, end: 20130227

REACTIONS (1)
  - Cellulitis [Not Recovered/Not Resolved]
